FAERS Safety Report 4718861-5 (Version None)
Quarter: 2005Q3

REPORT INFORMATION
  Report Type: 
  Country: None (occurrence: None)
  Receive Date: 20050719
  Receipt Date: 20050527
  Transmission Date: 20060218
  Serious: Yes (Life-Threatening, Hospitalization)
  Sender: FDA-Public Use
  Company Number: PAR_0033_2005

PATIENT
  Age: 77 Year
  Sex: Female

DRUGS (2)
  1. ISOPTIN [Suspect]
     Indication: HYPERTENSION
     Dosage: 240 MG QDAY PO
     Route: 048
     Dates: start: 19991125, end: 20050426
  2. PERINDOPRIL [Concomitant]

REACTIONS (3)
  - BONE MARROW DEPRESSION [None]
  - OSTEOPOROSIS [None]
  - TREATMENT NONCOMPLIANCE [None]
